FAERS Safety Report 4796786-7 (Version None)
Quarter: 2005Q4

REPORT INFORMATION
  Report Type: 
  Country: None (occurrence: None)
  Receive Date: 20051011
  Receipt Date: 20051011
  Transmission Date: 20060501
  Serious: Yes (Other)
  Sender: FDA-Public Use
  Company Number: None

PATIENT
  Age: 26 Year
  Sex: Female
  Weight: 53.0709 kg

DRUGS (2)
  1. MINOCYCLINE 50 MG [Suspect]
     Indication: ACNE
     Dosage: 50 MG TWICE A DAY PO
     Route: 048
     Dates: start: 20020401, end: 20050201
  2. MINOCYCLINE 50 MG [Suspect]
     Indication: SYSTEMIC LUPUS ERYTHEMATOSUS
     Dosage: 50 MG TWICE A DAY PO
     Route: 048
     Dates: start: 20020401, end: 20050201

REACTIONS (4)
  - LIVER FUNCTION TEST ABNORMAL [None]
  - OEDEMA PERIPHERAL [None]
  - SYSTEMIC LUPUS ERYTHEMATOSUS [None]
  - URTICARIA [None]
